FAERS Safety Report 11610914 (Version 18)
Quarter: 2016Q2

REPORT INFORMATION
  Report Type: Spontaneous
  Country: US (occurrence: US)
  Receive Date: 20151008
  Receipt Date: 20160425
  Transmission Date: 20160815
  Serious: Yes (Other)
  Sender: FDA-Public Use
  Company Number: US-PFIZER INC-2015309199

PATIENT
  Age: 60 Year
  Sex: Female
  Weight: 75 kg

DRUGS (29)
  1. SUTENT [Suspect]
     Active Substance: SUNITINIB MALATE
     Dosage: 25 MG, UNK
     Route: 048
     Dates: start: 20151102
  2. TRILEPTAL [Concomitant]
     Active Substance: OXCARBAZEPINE
     Indication: SEIZURE
     Dosage: 600 MG, 2X/DAY
  3. CRESTOR [Concomitant]
     Active Substance: ROSUVASTATIN CALCIUM
     Dosage: UNK
  4. METFORMIN [Concomitant]
     Active Substance: METFORMIN HYDROCHLORIDE
     Dosage: UNK
  5. GLUCOPHAGE [Concomitant]
     Active Substance: METFORMIN HYDROCHLORIDE
     Dosage: UNK
  6. VITAMIN D3 [Concomitant]
     Active Substance: CHOLECALCIFEROL
     Dosage: UNK
  7. AMLODIPINE W/LISINOPRIL [Concomitant]
     Dosage: UNK
  8. FLUZONE [Concomitant]
     Active Substance: INFLUENZA A VIRUS A/CALIFORNIA/7/2009 X-179A (H1N1) ANTIGEN (FORMALDEHYDE INACTIVATED)\INFLUENZA A VIRUS A/VICTORIA/210/2009 X-187 (H3N2) ANTIGEN (FORMALDEHYDE INACTIVATED)\INFLUENZA B VIRUS B/BRISBANE/60/2008 ANTIGEN (FORMALDEHYDE INACTIVATED)
     Dosage: UNK
  9. LOTREL [Concomitant]
     Active Substance: AMLODIPINE BESYLATE\BENAZEPRIL HYDROCHLORIDE
     Dosage: ^5/40^
  10. CITALOPRAM [Concomitant]
     Active Substance: CITALOPRAM HYDROBROMIDE
     Indication: ANXIETY
     Dosage: UNK
  11. DECADRON [Concomitant]
     Active Substance: DEXAMETHASONE
     Dosage: UNK
  12. SUTENT [Suspect]
     Active Substance: SUNITINIB MALATE
     Dosage: UNK, CYCLIC (2 WEEKS OFF)
     Route: 048
     Dates: start: 20151026
  13. SUTENT [Suspect]
     Active Substance: SUNITINIB MALATE
     Dosage: 12.5 MG, ONCE DAILY, CYCLIC (2 WEEKS ON AND 1 WEEK OFF)
     Route: 048
     Dates: end: 20160112
  14. SUTENT [Suspect]
     Active Substance: SUNITINIB MALATE
     Dosage: 50 MG, UNK
     Route: 048
  15. LISINOPRIL. [Concomitant]
     Active Substance: LISINOPRIL
     Dosage: UNK
  16. LEXAPRO [Concomitant]
     Active Substance: ESCITALOPRAM OXALATE
     Dosage: UNK
  17. SUTENT [Suspect]
     Active Substance: SUNITINIB MALATE
     Dosage: 25 MG, ALTERNATE DAY
     Route: 048
  18. SUTENT [Suspect]
     Active Substance: SUNITINIB MALATE
     Dosage: 12.5 MG, CYCLIC (2 WEEKS ON AND 1 WEEK OFF); ONE EVERY DAY
     Route: 048
     Dates: end: 20160309
  19. TRILEPTAL [Concomitant]
     Active Substance: OXCARBAZEPINE
     Dosage: 300 MG, 3X/DAY
  20. REQUIP [Concomitant]
     Active Substance: ROPINIROLE HYDROCHLORIDE
     Dosage: UNK
  21. OXCARBAZEPINE. [Concomitant]
     Active Substance: OXCARBAZEPINE
     Dosage: UNK
  22. SUTENT [Suspect]
     Active Substance: SUNITINIB MALATE
     Dosage: 12.5 MG, CYCLIC (1 WEEK ON/1 WEEK OFF)
     Route: 048
  23. ASPIRIN. [Concomitant]
     Active Substance: ASPIRIN
     Dosage: 81 MG, UNK (3 TIMES A WEEK)
  24. LORATADINE. [Concomitant]
     Active Substance: LORATADINE
     Dosage: UNK
  25. SUTENT [Suspect]
     Active Substance: SUNITINIB MALATE
     Indication: MENINGIOMA MALIGNANT
     Dosage: 37.5 MG, DAILY
     Route: 048
     Dates: start: 20150917, end: 20151013
  26. LISINOPRIL. [Concomitant]
     Active Substance: LISINOPRIL
     Dosage: 20 MG, 1X/DAY
  27. FLONASE [Concomitant]
     Active Substance: FLUTICASONE PROPIONATE
     Dosage: UNK
     Route: 045
  28. TYLENOL [Concomitant]
     Active Substance: ACETAMINOPHEN
     Dosage: UNK
  29. APRACLONIDINE [Concomitant]
     Active Substance: APRACLONIDINE HYDROCHLORIDE
     Indication: EYE DISORDER
     Dosage: 1 GTT, 2X/DAY (AS NEEDED)
     Dates: start: 20151211

REACTIONS (33)
  - Mucosal inflammation [Not Recovered/Not Resolved]
  - Paralysis [Unknown]
  - Electrocardiogram abnormal [Unknown]
  - Balance disorder [Recovered/Resolved]
  - Meningioma malignant [Unknown]
  - Ear infection [Not Recovered/Not Resolved]
  - Blood glucose abnormal [Unknown]
  - Fatigue [Not Recovered/Not Resolved]
  - Otorrhoea [Unknown]
  - Gait disturbance [Recovering/Resolving]
  - Hyperhidrosis [Unknown]
  - Product use issue [Unknown]
  - Drug dose omission [Unknown]
  - Sinusitis [Unknown]
  - Gastritis [Unknown]
  - Headache [Unknown]
  - Intentional product misuse [Unknown]
  - Disease progression [Unknown]
  - Hypertension [Recovered/Resolved]
  - Hyperglycaemia [Unknown]
  - Nausea [Unknown]
  - Vomiting [Recovered/Resolved]
  - Dysarthria [Recovering/Resolving]
  - Dizziness [Unknown]
  - Pain in jaw [Unknown]
  - Alanine aminotransferase increased [Unknown]
  - Pharyngeal ulceration [Unknown]
  - Oropharyngeal pain [Unknown]
  - Sputum increased [Unknown]
  - Atrioventricular block first degree [Unknown]
  - Mastication disorder [Unknown]
  - Cranial nerve disorder [Unknown]
  - Eyelid ptosis [Unknown]

NARRATIVE: CASE EVENT DATE: 2015
